FAERS Safety Report 8829635 (Version 1)
Quarter: 2012Q4

REPORT INFORMATION
  Report Type: 
  Country: US (occurrence: US)
  Receive Date: 20121008
  Receipt Date: 20121008
  Transmission Date: 20130627
  Serious: No
  Sender: FDA-Public Use
  Company Number: US-TEVA-301441USA

PATIENT
  Sex: Female
  Weight: 61.74 kg

DRUGS (2)
  1. QVAR [Suspect]
     Indication: ASTHMA
     Route: 055
     Dates: start: 201103
  2. SALBUTAMOL SULFATE [Concomitant]
     Indication: ASTHMA

REACTIONS (1)
  - Dysphonia [Not Recovered/Not Resolved]
